FAERS Safety Report 6869256-X (Version None)
Quarter: 2010Q3

REPORT INFORMATION
  Report Type: 
  Country: None (occurrence: None)
  Receive Date: 20100722
  Receipt Date: 20080903
  Transmission Date: 20110219
  Serious: No
  Sender: FDA-Public Use
  Company Number: US-PFIZER INC-2008063301

PATIENT
  Sex: Male
  Weight: 91.818 kg

DRUGS (10)
  1. CHANTIX [Suspect]
     Indication: SMOKING CESSATION THERAPY
     Dates: start: 20080101
  2. NIASPAN [Concomitant]
  3. LOPID [Concomitant]
  4. CRESTOR [Concomitant]
  5. CARDIZEM [Concomitant]
  6. TOPROL-XL [Concomitant]
  7. KLOR-CON [Concomitant]
  8. HYDROCHLOROTHIAZIDE [Concomitant]
  9. ADVAIR DISKUS 100/50 [Concomitant]
  10. ALBUTEROL [Concomitant]

REACTIONS (2)
  - HEADACHE [None]
  - HICCUPS [None]
